FAERS Safety Report 6444034-4 (Version None)
Quarter: 2009Q4

REPORT INFORMATION
  Report Type: 
  Country: None (occurrence: None)
  Receive Date: 20091116
  Receipt Date: 20091116
  Transmission Date: 20100525
  Serious: Yes (Other)
  Sender: FDA-Public Use
  Company Number: None

PATIENT
  Age: 9 Year
  Sex: Female
  Weight: 28.5766 kg

DRUGS (1)
  1. POLYETHYLENE GLYCOL 3350 [Suspect]
     Indication: CONSTIPATION
     Dosage: 17 GM EVERY HOUR PO
     Route: 048
     Dates: start: 20090613, end: 20090613

REACTIONS (16)
  - ABDOMINAL DISTENSION [None]
  - ABDOMINAL PAIN [None]
  - AGGRESSION [None]
  - ANXIETY [None]
  - DYSURIA [None]
  - FAECAL INCONTINENCE [None]
  - FEAR [None]
  - FLATULENCE [None]
  - HEADACHE [None]
  - INTENTIONAL SELF-INJURY [None]
  - NAUSEA [None]
  - NIGHTMARE [None]
  - OBSESSIVE-COMPULSIVE DISORDER [None]
  - ORAL PAIN [None]
  - RASH [None]
  - TIC [None]
